FAERS Safety Report 5629849-4 (Version None)
Quarter: 2008Q1

REPORT INFORMATION
  Report Type: 
  Country: None (occurrence: None)
  Receive Date: 20080218
  Receipt Date: 20080214
  Transmission Date: 20080703
  Serious: Yes (Death)
  Sender: FDA-Public Use
  Company Number: US-ASTRAZENECA-2007UW21493

PATIENT
  Age: 6977 Day
  Sex: Male

DRUGS (2)
  1. SEROQUEL [Suspect]
     Indication: ANXIETY
     Dosage: 12.5 - 25 MG
     Route: 048
     Dates: start: 20040105
  2. SEROQUEL [Suspect]
     Indication: DEPRESSION
     Dosage: 12.5 - 25 MG
     Route: 048
     Dates: start: 20040105

REACTIONS (2)
  - DEATH [None]
  - DIABETES MELLITUS [None]
